FAERS Safety Report 7701129-2 (Version None)
Quarter: 2011Q3

REPORT INFORMATION
  Report Type: 
  Country: None (occurrence: None)
  Receive Date: 20110822
  Receipt Date: 20110813
  Transmission Date: 20111222
  Serious: Yes (Life-Threatening, Hospitalization, Other)
  Sender: FDA-Public Use
  Company Number: US-MPIJNJ-2011-03618

PATIENT
  Age: 15 Year
  Sex: Female
  Weight: 108.4 kg

DRUGS (4)
  1. CYTARABINE [Suspect]
     Indication: ACUTE MYELOID LEUKAEMIA
     Dosage: 1000 MG/M2, CYCLIC
     Route: 042
     Dates: start: 20110803, end: 20110807
  2. CYTARABINE [Suspect]
     Dosage: UNK
     Route: 037
  3. ETOPOSIDE [Suspect]
     Indication: ACUTE MYELOID LEUKAEMIA
     Dosage: 150 MG/M2, CYCLIC
     Route: 042
     Dates: start: 20110803, end: 20110807
  4. VELCADE [Suspect]
     Indication: ACUTE MYELOID LEUKAEMIA
     Dosage: 1.3 MG/M2, CYCLIC
     Route: 040
     Dates: start: 20110803, end: 20110806

REACTIONS (9)
  - HYPOXIA [None]
  - PULMONARY OEDEMA [None]
  - SEPSIS [None]
  - HYPOPHOSPHATAEMIA [None]
  - HEADACHE [None]
  - HYPOTENSION [None]
  - HYPOKALAEMIA [None]
  - DYSPNOEA [None]
  - HYPOCALCAEMIA [None]
